FAERS Safety Report 4280235-1 (Version None)
Quarter: 2004Q1

REPORT INFORMATION
  Report Type: 
  Country: None (occurrence: None)
  Receive Date: 20040128
  Receipt Date: 20031031
  Transmission Date: 20041129
  Serious: Yes (Other)
  Sender: FDA-Public Use
  Company Number: US-ROCHE-350601

PATIENT
  Sex: Male
  Weight: 73 kg

DRUGS (5)
  1. PEGASYS [Suspect]
     Indication: HEPATITIS C
     Route: 058
     Dates: start: 20030725
  2. COPEGUS [Suspect]
     Indication: HEPATITIS C
     Dosage: DOSING REGIMEN: 200 MG, 3 BID.
     Route: 048
     Dates: start: 20030725
  3. KALETRA [Concomitant]
     Indication: HIV INFECTION
     Route: 048
     Dates: start: 20030822
  4. EPIVIR [Concomitant]
     Indication: HIV INFECTION
     Route: 048
     Dates: start: 19960615
  5. ZERIT [Concomitant]
     Indication: HIV INFECTION
     Route: 048
     Dates: start: 19960615

REACTIONS (1)
  - APHTHOUS STOMATITIS [None]
